FAERS Safety Report 5927901-7 (Version None)
Quarter: 2008Q4

REPORT INFORMATION
  Report Type: 
  Country: None (occurrence: None)
  Receive Date: 20081022
  Receipt Date: 20081022
  Transmission Date: 20090506
  Serious: Yes (Life-Threatening, Hospitalization)
  Sender: FDA-Public Use
  Company Number: None

PATIENT
  Age: 55 Year
  Sex: Female
  Weight: 72.5755 kg

DRUGS (1)
  1. COPAXONE [Suspect]
     Indication: MULTIPLE SCLEROSIS
     Dosage: 1ML DAILY SQ, YEARS TO PRESENT
     Route: 058

REACTIONS (3)
  - IMPAIRED HEALING [None]
  - INJECTION SITE DISCOLOURATION [None]
  - RENAL CELL CARCINOMA [None]
